FAERS Safety Report 8265304-3 (Version None)
Quarter: 2012Q2

REPORT INFORMATION
  Report Type: 
  Country: None (occurrence: None)
  Receive Date: 20120403
  Receipt Date: 20120319
  Transmission Date: 20120825
  Serious: Yes (Other)
  Sender: FDA-Public Use
  Company Number: B0791518A

PATIENT
  Sex: 0

DRUGS (2)
  1. MELPHALAN HYDROCHLORIDE [Suspect]
     Indication: RETINOBLASTOMA
     Dosage: INTRAVENOUS
     Route: 042
  2. HEPARIN [Concomitant]

REACTIONS (1)
  - VITREOUS HAEMORRHAGE [None]
